FAERS Safety Report 5035153-8 (Version None)
Quarter: 2006Q2

REPORT INFORMATION
  Report Type: 
  Country: None (occurrence: None)
  Receive Date: 20060627
  Receipt Date: 20060616
  Transmission Date: 20061013
  Serious: Yes (Other)
  Sender: FDA-Public Use
  Company Number: PHRM2006FR01853

PATIENT
  Age: 75 Year
  Sex: Female

DRUGS (1)
  1. ZOMETA [Suspect]
     Indication: METASTASES TO BONE
     Route: 042

REACTIONS (4)
  - HAEMOPHILUS INFECTION [None]
  - OSTEONECROSIS [None]
  - STREPTOCOCCAL ABSCESS [None]
  - TOOTH ABSCESS [None]
